FAERS Safety Report 4305052-5 (Version None)
Quarter: 2004Q1

REPORT INFORMATION
  Report Type: 
  Country: None (occurrence: None)
  Receive Date: 20040225
  Receipt Date: 20040225
  Transmission Date: 20041129
  Serious: Yes (Hospitalization)
  Sender: FDA-Public Use
  Company Number: None

PATIENT
  Sex: Female

DRUGS (12)
  1. HEPARIN [Suspect]
     Indication: AORTIC VALVE REPLACEMENT
     Dosage: 1000 UNITS IV CONT INF
     Route: 042
     Dates: start: 20030915, end: 20031006
  2. ASPIRIN [Concomitant]
  3. APAP TAB [Concomitant]
  4. ALLOPURINOL [Concomitant]
  5. ATORVASTATIN [Concomitant]
  6. FUROSEMIDE [Concomitant]
  7. HYDRALAZINE HCL [Concomitant]
  8. METHYLPHENIDATE HCL [Concomitant]
  9. MORPHINE [Concomitant]
  10. NAFCILLIN SODIUM [Concomitant]
  11. INSULIN [Concomitant]
  12. SERTRALINE HCL [Concomitant]

REACTIONS (7)
  - ACTIVATED PARTIAL THROMBOPLASTIN TIME PROLONGED [None]
  - DUODENITIS [None]
  - FAECES DISCOLOURED [None]
  - HAEMORRHAGE [None]
  - HYPOTENSION [None]
  - INTERNATIONAL NORMALISED RATIO DECREASED [None]
  - PLATELET COUNT DECREASED [None]
